FAERS Safety Report 26125408 (Version 1)
Quarter: 2025Q4

REPORT INFORMATION
  Report Type: Spontaneous
  Country: US (occurrence: US)
  Receive Date: 20251205
  Receipt Date: 20251205
  Transmission Date: 20260119
  Serious: No
  Sender: ALEXION PHARMACEUTICALS
  Company Number: US-AstraZeneca-CH-01006850A

PATIENT

DRUGS (1)
  1. BREZTRI [Suspect]
     Active Substance: BUDESONIDE\FORMOTEROL\GLYCOPYRROLATE
     Route: 065

REACTIONS (7)
  - Confusional state [Unknown]
  - Therapy cessation [Unknown]
  - Dyspnoea [Unknown]
  - Respiration abnormal [Unknown]
  - Nervousness [Unknown]
  - Rehabilitation therapy [Unknown]
  - Emergency care [Unknown]
